FAERS Safety Report 11680871 (Version 2)
Quarter: 2015Q4

REPORT INFORMATION
  Report Type: Spontaneous
  Country: US (occurrence: US)
  Receive Date: 20151027
  Receipt Date: 20151104
  Transmission Date: 20160304
  Serious: No
  Sender: FDA-Public Use
  Company Number: US-ELI_LILLY_AND_COMPANY-US201004002310

PATIENT
  Sex: Female

DRUGS (2)
  1. FORTEO [Suspect]
     Active Substance: TERIPARATIDE
     Dosage: 20 UG, QD
  2. FORTEO [Suspect]
     Active Substance: TERIPARATIDE
     Indication: OSTEOPOROSIS
     Dosage: 20 UG, DAILY (1/D)
     Dates: start: 201002

REACTIONS (12)
  - Injection site streaking [Unknown]
  - Back disorder [Unknown]
  - Joint swelling [Unknown]
  - Gait disturbance [Unknown]
  - Arthropathy [Unknown]
  - Pruritus generalised [Unknown]
  - Injection site pruritus [Unknown]
  - Hypersensitivity [Unknown]
  - Dysstasia [Unknown]
  - Pain in extremity [Unknown]
  - Injection site pain [Unknown]
  - Pain [Unknown]

NARRATIVE: CASE EVENT DATE: 2010
